FAERS Safety Report 16631740 (Version 3)
Quarter: 2019Q3

REPORT INFORMATION
  Report Type: Spontaneous
  Country: US (occurrence: US)
  Receive Date: 20190725
  Receipt Date: 20190805
  Transmission Date: 20191004
  Serious: Yes (Life-Threatening, Hospitalization)
  Sender: FDA-Public Use
  Company Number: US-HORIZON-PRO-0154-2019

PATIENT
  Age: 13 Year
  Sex: Female

DRUGS (13)
  1. CYSTAGON [Concomitant]
     Active Substance: CYSTEAMINE BITARTRATE
  2. G-LEVOCARNITINE [Concomitant]
  3. RENVELA [Concomitant]
     Active Substance: SEVELAMER CARBONATE
  4. PROCRIT [Concomitant]
     Active Substance: ERYTHROPOIETIN
  5. CALCITRIOL. [Concomitant]
     Active Substance: CALCITRIOL
  6. ZOFRAN [Concomitant]
     Active Substance: ONDANSETRON HYDROCHLORIDE
  7. LACTULOSE. [Concomitant]
     Active Substance: LACTULOSE
  8. NUTROPIN AQ NUSPIN [Concomitant]
     Active Substance: SOMATROPIN
  9. PRILOSEC [Concomitant]
     Active Substance: OMEPRAZOLE MAGNESIUM
  10. VITAMIN D3 [Concomitant]
     Active Substance: CHOLECALCIFEROL
  11. CYTRA-K [Concomitant]
     Active Substance: CITRIC ACID MONOHYDRATE\POTASSIUM CITRATE
  12. PROCYSBI [Suspect]
     Active Substance: CYSTEAMINE BITARTRATE
     Indication: CYSTINOSIS
     Dosage: 750 MG (10 X 75 MG CAPSULES) BID
     Dates: start: 2013
  13. SPIRONOLACTONE. [Concomitant]
     Active Substance: SPIRONOLACTONE

REACTIONS (3)
  - Mechanical ventilation [Recovered/Resolved]
  - Renal transplant [Recovered/Resolved]
  - Cardiac failure congestive [Recovered/Resolved]

NARRATIVE: CASE EVENT DATE: 20180906
